FAERS Safety Report 15137108 (Version 1)
Quarter: 2018Q3

REPORT INFORMATION
  Report Type: Spontaneous
  Country: US (occurrence: US)
  Receive Date: 20180712
  Receipt Date: 20180712
  Transmission Date: 20181010
  Serious: No
  Sender: FDA-Public Use
  Company Number: US-FOUNDATIONCONSUMERHC-2018-US-009261

PATIENT
  Age: 31 Year
  Sex: Female
  Weight: 56.7 kg

DRUGS (5)
  1. WALGREENS THROAT LOZENGES [Concomitant]
  2. CORTIZONE 10 [Concomitant]
     Active Substance: HYDROCORTISONE
  3. TAKE ACTION [Suspect]
     Active Substance: LEVONORGESTREL
     Indication: POST COITAL CONTRACEPTION
     Dosage: 1.5 MG
     Route: 048
     Dates: start: 20180523, end: 20180523
  4. POTASSIUM [Concomitant]
     Active Substance: POTASSIUM
  5. KAVA KAVA [Concomitant]
     Active Substance: PIPER METHYSTICUM ROOT

REACTIONS (2)
  - Dizziness [Unknown]
  - Vaginal haemorrhage [Not Recovered/Not Resolved]

NARRATIVE: CASE EVENT DATE: 20180527
